FAERS Safety Report 14496933 (Version 1)
Quarter: 2018Q1

REPORT INFORMATION
  Report Type: Spontaneous
  Country: US (occurrence: US)
  Receive Date: 20180207
  Receipt Date: 20180207
  Transmission Date: 20180509
  Serious: No
  Sender: FDA-Public Use
  Company Number: US-PFIZER INC-2018052683

PATIENT
  Age: 66 Year
  Sex: Female

DRUGS (1)
  1. ZOLOFT [Suspect]
     Active Substance: SERTRALINE HYDROCHLORIDE
     Dosage: UNK

REACTIONS (6)
  - Tinnitus [Unknown]
  - Feeling abnormal [Unknown]
  - Drug prescribing error [Unknown]
  - Abdominal pain [Unknown]
  - Diarrhoea [Unknown]
  - Withdrawal syndrome [Unknown]
